FAERS Safety Report 8181432-5 (Version None)
Quarter: 2012Q1

REPORT INFORMATION
  Report Type: 
  Country: None (occurrence: None)
  Receive Date: 20120302
  Receipt Date: 20120224
  Transmission Date: 20120608
  Serious: Yes (Other)
  Sender: FDA-Public Use
  Company Number: FR-BRISTOL-MYERS SQUIBB COMPANY-15881246

PATIENT
  Age: 83 Year
  Sex: Male

DRUGS (6)
  1. INSULIN GLARGINE [Suspect]
     Indication: TYPE 2 DIABETES MELLITUS
     Route: 058
  2. ASPIRIN [Concomitant]
  3. SAXAGLIPTIN [Suspect]
     Indication: TYPE 2 DIABETES MELLITUS
     Dosage: LAST DOSE:04MAR11
     Route: 048
     Dates: start: 20110301, end: 20110304
  4. INSULIN [Suspect]
     Indication: TYPE 2 DIABETES MELLITUS
     Route: 058
  5. EZETIMIBE [Concomitant]
  6. PLACEBO [Suspect]
     Indication: TYPE 2 DIABETES MELLITUS
     Dosage: LAST DOSE: 04-MAR-2011
     Route: 048
     Dates: start: 20110301

REACTIONS (2)
  - OVERDOSE [None]
  - HYPOGLYCAEMIA [None]
